FAERS Safety Report 17524808 (Version 1)
Quarter: 2020Q1

REPORT INFORMATION
  Report Type: Spontaneous
  Country: US (occurrence: US)
  Receive Date: 20200303
  Receipt Date: 20200303
  Transmission Date: 20200409
  Serious: No
  Sender: FDA-Public Use
  Company Number: None

PATIENT
  Age: 75 Year
  Sex: Male

DRUGS (1)
  1. AMIODARONE (AMIODARONE HCL (BARR) 200MG TAB) [Suspect]
     Active Substance: AMIODARONE
     Indication: CARDIAC FAILURE CONGESTIVE
     Route: 048
     Dates: start: 20161201

REACTIONS (2)
  - Toxicity to various agents [None]
  - Thyroiditis [None]

NARRATIVE: CASE EVENT DATE: 20191022
